FAERS Safety Report 8511663-3 (Version None)
Quarter: 2012Q3

REPORT INFORMATION
  Report Type: 
  Country: None (occurrence: None)
  Receive Date: 20120716
  Receipt Date: 20120702
  Transmission Date: 20120928
  Serious: Yes (Hospitalization)
  Sender: FDA-Public Use
  Company Number: US-ELI_LILLY_AND_COMPANY-US201207001522

PATIENT
  Age: 43 Year
  Sex: Female

DRUGS (4)
  1. CYMBALTA [Suspect]
     Indication: OFF LABEL USE
     Dosage: 60 MG, QD
     Route: 065
  2. BACTRIM [Concomitant]
  3. TINDAMAX [Concomitant]
  4. CYMBALTA [Suspect]
     Dosage: 80 MG, QD
     Route: 065
     Dates: end: 20120629

REACTIONS (5)
  - LYME DISEASE [None]
  - PAIN [None]
  - ROCKY MOUNTAIN SPOTTED FEVER [None]
  - EPSTEIN-BARR VIRUS INFECTION [None]
  - OFF LABEL USE [None]
